FAERS Safety Report 19021736 (Version 2)
Quarter: 2021Q1

REPORT INFORMATION
  Report Type: Report from Study
  Country: KR (occurrence: KR)
  Receive Date: 20210317
  Receipt Date: 20210323
  Transmission Date: 20210420
  Serious: Yes (Death, Other)
  Sender: FDA-Public Use
  Company Number: KR-DSJP-DSJ-2021-107659AA

PATIENT
  Age: 70 Year
  Sex: Female

DRUGS (5)
  1. MOTILITONE [Concomitant]
     Active Substance: HERBALS
     Dosage: 30 MG, DAILY
     Route: 048
     Dates: start: 20210205
  2. OLMESARTAN MEDOXOMIL. [Suspect]
     Active Substance: OLMESARTAN MEDOXOMIL
     Indication: HYPERTENSION
     Dosage: 40 MG, DAILY
     Route: 048
     Dates: start: 20210215
  3. EDOXABAN [Concomitant]
     Active Substance: EDOXABAN TOSYLATE
     Dosage: 30 MG, DAY
     Route: 048
     Dates: start: 20170926
  4. PILSICAINIDE [Concomitant]
     Active Substance: PILSICAINIDE
     Dosage: 25 MG, DAILY
     Route: 048
     Dates: start: 20210205
  5. LANSOPRAZOLE. [Concomitant]
     Active Substance: LANSOPRAZOLE
     Dosage: 30 MG, DAILY
     Route: 048
     Dates: start: 20200817

REACTIONS (1)
  - Sudden death [Fatal]

NARRATIVE: CASE EVENT DATE: 20210308
